FAERS Safety Report 15773019 (Version 1)
Quarter: 2018Q4

REPORT INFORMATION
  Report Type: Spontaneous
  Country: SE (occurrence: SE)
  Receive Date: 20181228
  Receipt Date: 20181228
  Transmission Date: 20190205
  Serious: Yes (Life-Threatening)
  Sender: FDA-Public Use
  Company Number: SE-TEVA-2018-SE-992287

PATIENT
  Age: 72 Year
  Sex: Male
  Weight: 68 kg

DRUGS (6)
  1. ATORVASTATIN [Suspect]
     Active Substance: ATORVASTATIN
     Indication: MYOCARDIAL INFARCTION
     Dosage: 40 MILLIGRAM DAILY;
     Route: 065
     Dates: start: 20171018, end: 20171106
  2. TROMBYL [Concomitant]
     Active Substance: ASPIRIN
     Dates: start: 20171018
  3. RAMIPRIL. [Suspect]
     Active Substance: RAMIPRIL
     Indication: MYOCARDIAL INFARCTION
     Dosage: 1.25 MILLIGRAM DAILY;
     Route: 065
     Dates: start: 20171018, end: 20171106
  4. WARAN [Concomitant]
     Active Substance: WARFARIN SODIUM
  5. METOPROLOL. [Concomitant]
     Active Substance: METOPROLOL
  6. CLOPIDOGREL [Concomitant]
     Active Substance: CLOPIDOGREL BISULFATE
     Dates: start: 20171018

REACTIONS (4)
  - Pain [Recovered/Resolved with Sequelae]
  - Weight decreased [Recovered/Resolved with Sequelae]
  - Cough [Recovered/Resolved with Sequelae]
  - Musculoskeletal stiffness [Recovered/Resolved with Sequelae]

NARRATIVE: CASE EVENT DATE: 20171024
